FAERS Safety Report 12998917 (Version 1)
Quarter: 2016Q4

REPORT INFORMATION
  Report Type: Report from Study
  Country: None (occurrence: AU)
  Receive Date: 20161205
  Receipt Date: 20161205
  Transmission Date: 20170207
  Serious: Yes (Other)
  Sender: FDA-Public Use
  Company Number: AU-ABBVIE-16K-008-1796515-00

PATIENT
  Age: 62 Year
  Sex: Male

DRUGS (1)
  1. HUMIRA [Suspect]
     Active Substance: ADALIMUMAB
     Indication: ANKYLOSING SPONDYLITIS
     Route: 058

REACTIONS (9)
  - Incorrect dose administered [Unknown]
  - Cardiac discomfort [Unknown]
  - Cardiac flutter [Unknown]
  - Chondropathy [Unknown]
  - Injection site mass [Unknown]
  - Hyperhidrosis [Unknown]
  - Feeling hot [Unknown]
  - Loss of consciousness [Unknown]
  - Wrong technique in product usage process [Unknown]

NARRATIVE: CASE EVENT DATE: 201610
